FAERS Safety Report 18905017 (Version 2)
Quarter: 2021Q1

REPORT INFORMATION
  Report Type: Spontaneous
  Country: CN (occurrence: CN)
  Receive Date: 20210217
  Receipt Date: 20210218
  Transmission Date: 20210420
  Serious: No
  Sender: FDA-Public Use
  Company Number: CN-009507513-2102CHN004530

PATIENT
  Age: 72 Year
  Sex: Male
  Weight: 65 kg

DRUGS (6)
  1. IMIPENEM AND CILASTATIN [Suspect]
     Active Substance: CILASTATIN SODIUM\IMIPENEM
     Indication: INFECTION
     Dosage: 0.5 G EVERY 8 H
  2. BLOOD CELLS, RED [Concomitant]
     Active Substance: HUMAN RED BLOOD CELL
     Indication: ANAEMIA
     Dosage: 2 U
  3. GRANULOCYTE COLONY STIMULATING FACTOR (UNSPECIFIED) [Concomitant]
     Active Substance: FILGRASTIM
     Dosage: 225 MICROGRAM, QD
  4. CASPOFUNGIN ACETATE. [Suspect]
     Active Substance: CASPOFUNGIN ACETATE
     Indication: FUNGAL INFECTION
     Dosage: 70 MG QD (LOADING DOSE)
     Route: 042
  5. VANCOMYCIN [Concomitant]
     Active Substance: VANCOMYCIN
     Indication: INFECTION
     Dosage: 0.5 GRAM, EVERY 12H
  6. CASPOFUNGIN ACETATE. [Suspect]
     Active Substance: CASPOFUNGIN ACETATE
     Dosage: 50 MILLIGRAM, QD (MAINTENANCE DOSE)
     Route: 042

REACTIONS (2)
  - Product use issue [Unknown]
  - Product use in unapproved indication [Unknown]
